FAERS Safety Report 4710786-4 (Version None)
Quarter: 2005Q3

REPORT INFORMATION
  Report Type: 
  Country: None (occurrence: None)
  Receive Date: 20050708
  Receipt Date: 20050623
  Transmission Date: 20060218
  Serious: Yes (Death)
  Sender: FDA-Public Use
  Company Number: 2005-DE-02411GD

PATIENT
  Age: 48 Year
  Sex: Female

DRUGS (1)
  1. MORPHINE [Suspect]
     Dosage: IV
     Route: 042

REACTIONS (13)
  - DRUG ABUSER [None]
  - DRUG ADMINISTRATION ERROR [None]
  - DRUG LEVEL INCREASED [None]
  - DYSPNOEA [None]
  - FOREIGN BODY TRAUMA [None]
  - HYPOTONIA [None]
  - OROPHARYNGEAL CANCER RECURRENT [None]
  - PHARYNGEAL STENOSIS [None]
  - PHARYNGITIS [None]
  - POOR QUALITY DRUG ADMINISTERED [None]
  - PULMONARY GRANULOMA [None]
  - RESPIRATORY DEPRESSION [None]
  - SELF-MEDICATION [None]
